FAERS Safety Report 7277656-1 (Version None)
Quarter: 2011Q1

REPORT INFORMATION
  Report Type: 
  Country: None (occurrence: None)
  Receive Date: 20110202
  Receipt Date: 20110202
  Transmission Date: 20110831
  Serious: Yes (Other)
  Sender: FDA-Public Use
  Company Number: None

PATIENT
  Age: 50 Year
  Sex: Male
  Weight: 86.1834 kg

DRUGS (1)
  1. AMBIEN [Suspect]
     Indication: TINNITUS
     Dosage: 10-20MG NIGHTLY PO
     Route: 048
     Dates: start: 20100301, end: 20100824

REACTIONS (11)
  - ANXIETY [None]
  - DRUG DEPENDENCE [None]
  - IMPAIRED WORK ABILITY [None]
  - BLADDER PAIN [None]
  - DIZZINESS [None]
  - FEELING ABNORMAL [None]
  - CHEST PAIN [None]
  - INSOMNIA [None]
  - ABDOMINAL PAIN [None]
  - EYE PAIN [None]
  - HEADACHE [None]
